FAERS Safety Report 9396792 (Version 3)
Quarter: 2013Q4

REPORT INFORMATION
  Report Type: Spontaneous
  Country: US (occurrence: US)
  Receive Date: 20130712
  Receipt Date: 20131003
  Transmission Date: 20140711
  Serious: Yes (Other)
  Sender: FDA-Public Use
  Company Number: US-MERCK-1307USA005371

PATIENT
  Age: 38 Year
  Sex: Male

DRUGS (2)
  1. PEGINTRON [Suspect]
     Indication: HEPATITIS C
     Dosage: VIAL PEGINTRON
     Dates: start: 20130614, end: 20130829
  2. REBETOL [Suspect]
     Indication: HEPATITIS C
     Dosage: UNK
     Route: 048
     Dates: start: 20130614, end: 20130829

REACTIONS (14)
  - Faeces discoloured [Unknown]
  - Syncope [Unknown]
  - Rectal haemorrhage [Unknown]
  - Heart rate decreased [Unknown]
  - Micturition disorder [Unknown]
  - Chromaturia [Unknown]
  - Dizziness [Unknown]
  - Abdominal pain upper [Unknown]
  - Headache [Unknown]
  - Blood urine [Unknown]
  - Haematuria [Unknown]
  - Dizziness [Unknown]
  - Arthralgia [Unknown]
  - Hypotension [Unknown]
